FAERS Safety Report 22635916 (Version 1)
Quarter: 2023Q2

REPORT INFORMATION
  Report Type: Spontaneous
  Country: ID (occurrence: ID)
  Receive Date: 20230623
  Receipt Date: 20230623
  Transmission Date: 20230722
  Serious: Yes (Life-Threatening)
  Sender: FDA-Public Use
  Company Number: ID-MLMSERVICE-20230609-4342094-1

PATIENT
  Age: 29 Year
  Sex: Female

DRUGS (18)
  1. ALBUTEROL [Suspect]
     Active Substance: ALBUTEROL
     Indication: Asthma
     Dosage: 2 PUFFS/DAY ALMOST EVERY DAY (2 TIMES/WEEK, ESPECIALLY AT NIGHT), TOTAL OF 3 TIMES
     Route: 055
  2. ALBUTEROL [Suspect]
     Active Substance: ALBUTEROL
     Indication: Asthma
     Route: 048
  3. LACTATED RINGERS SOLUTION [Suspect]
     Active Substance: CALCIUM CHLORIDE\POTASSIUM CHLORIDE\SODIUM CHLORIDE\SODIUM LACTATE
     Indication: Asthma
     Dosage: CRYSTALLOID RINGER LACTATE
     Route: 065
  4. OXYGEN [Suspect]
     Active Substance: OXYGEN
     Indication: Supplementation therapy
     Dosage: NASAL CANNULA
     Route: 045
  5. OXYGEN [Suspect]
     Active Substance: OXYGEN
     Dosage: NASAL CANNULA
     Route: 045
  6. OXYGEN [Suspect]
     Active Substance: OXYGEN
     Route: 065
  7. OXYGEN [Suspect]
     Active Substance: OXYGEN
     Route: 065
  8. ALBUTEROL SULFATE\IPRATROPIUM BROMIDE [Suspect]
     Active Substance: ALBUTEROL SULFATE\IPRATROPIUM BROMIDE
     Indication: Asthma
     Dosage: IPRATROPIUM BROMIDE 0.5 MG/SALBUTAMOL SULFATE 3 MG PER ML
     Route: 065
  9. ALBUTEROL SULFATE\IPRATROPIUM BROMIDE [Suspect]
     Active Substance: ALBUTEROL SULFATE\IPRATROPIUM BROMIDE
     Route: 065
  10. BUDESONIDE [Suspect]
     Active Substance: BUDESONIDE
     Indication: Asthma
     Route: 065
  11. ACETYLCYSTEINE [Suspect]
     Active Substance: ACETYLCYSTEINE
     Indication: Cough
     Route: 048
  12. METHYLPREDNISOLONE [Suspect]
     Active Substance: METHYLPREDNISOLONE
     Indication: Asthma
     Dosage: DAY 1
     Route: 042
  13. METHYLPREDNISOLONE [Suspect]
     Active Substance: METHYLPREDNISOLONE
     Dosage: SUBSEQUENT DAYS
     Route: 042
  14. CEFTRIAXONE [Suspect]
     Active Substance: CEFTRIAXONE
     Indication: Infection
     Route: 042
  15. TERBUTALINE [Suspect]
     Active Substance: TERBUTALINE
     Indication: Product used for unknown indication
     Route: 058
  16. MAGNESIUM SULFATE [Suspect]
     Active Substance: MAGNESIUM SULFATE
     Indication: Product used for unknown indication
     Route: 065
  17. SODIUM CHLORIDE [Suspect]
     Active Substance: SODIUM CHLORIDE
     Indication: Product used for unknown indication
     Dosage: OVER 30 MIN
     Route: 065
  18. METHYLDOPA [Suspect]
     Active Substance: METHYLDOPA
     Indication: Hypertension
     Route: 048

REACTIONS (4)
  - Lactic acidosis [Unknown]
  - Therapy non-responder [Unknown]
  - Self-medication [Unknown]
  - Maternal exposure during pregnancy [Unknown]
